FAERS Safety Report 4737381-5 (Version None)
Quarter: 2005Q3

REPORT INFORMATION
  Report Type: 
  Country: None (occurrence: None)
  Receive Date: 20050804
  Receipt Date: 20050722
  Transmission Date: 20060218
  Serious: Yes (Other)
  Sender: FDA-Public Use
  Company Number: 2005106902

PATIENT
  Sex: Female
  Weight: 83.0083 kg

DRUGS (3)
  1. BEN-GAY ULTRA (MENTHOL, CAMPHOR, METHYL SALICYLATE) [Suspect]
     Indication: PAIN
     Dosage: 1-2 TIMES A DAY, TOPICAL
     Route: 061
     Dates: end: 20050721
  2. SALMETEROL XINAFOATE (SALMETEROL XINAFOATE) [Concomitant]
  3. BUDESONIDE [Concomitant]

REACTIONS (2)
  - CHOKING [None]
  - WHEEZING [None]
